FAERS Safety Report 4457207-7 (Version None)
Quarter: 2004Q3

REPORT INFORMATION
  Report Type: 
  Country: None (occurrence: None)
  Receive Date: 20040921
  Receipt Date: 20040909
  Transmission Date: 20050211
  Serious: No
  Sender: FDA-Public Use
  Company Number: 2004UW19017

PATIENT
  Age: 50 Year
  Sex: Male

DRUGS (4)
  1. SEROQUEL [Suspect]
     Indication: PSYCHOTIC DISORDER
     Dosage: 700 MG DAILY PO
     Route: 048
  2. TIGAN [Concomitant]
  3. LASIX [Concomitant]
  4. EPOGEN [Concomitant]

REACTIONS (3)
  - BRADYCARDIA [None]
  - HEPATIC FAILURE [None]
  - RENAL FAILURE [None]
